FAERS Safety Report 17194669 (Version 2)
Quarter: 2020Q1

REPORT INFORMATION
  Report Type: Report from Study
  Country: IL (occurrence: IL)
  Receive Date: 20191224
  Receipt Date: 20200103
  Transmission Date: 20200409
  Serious: Yes (Hospitalization, Other)
  Sender: FDA-Public Use
  Company Number: IL-ROCHE-2499150

PATIENT
  Age: 48 Year
  Sex: Female

DRUGS (3)
  1. OCREVUS [Suspect]
     Active Substance: OCRELIZUMAB
     Indication: RELAPSING MULTIPLE SCLEROSIS
     Route: 042
     Dates: start: 20180221
  2. BOTOX [Concomitant]
     Active Substance: ONABOTULINUMTOXINA
     Route: 065
     Dates: start: 20191120
  3. DYSPORT [Suspect]
     Active Substance: ABOBOTULINUMTOXINA
     Indication: PRODUCT USED FOR UNKNOWN INDICATION
     Route: 065

REACTIONS (3)
  - Vision blurred [Unknown]
  - Hemiparesis [Unknown]
  - Magnetic resonance imaging brain abnormal [Unknown]

NARRATIVE: CASE EVENT DATE: 20191124
